FAERS Safety Report 8208773-7 (Version None)
Quarter: 2012Q1

REPORT INFORMATION
  Report Type: 
  Country: None (occurrence: None)
  Receive Date: 20120314
  Receipt Date: 20120306
  Transmission Date: 20120608
  Serious: Yes (Hospitalization, Other)
  Sender: FDA-Public Use
  Company Number: US-BAYER-201024037NA

PATIENT
  Age: 32 Year
  Sex: Female
  Weight: 75.737 kg

DRUGS (6)
  1. YASMIN [Suspect]
     Indication: PRODUCT USED FOR UNKNOWN INDICATION
     Route: 048
     Dates: start: 20071012, end: 20081118
  2. METRONIDAZOLE [Concomitant]
     Indication: VAGINITIS BACTERIAL
     Dosage: UNK
     Dates: start: 20081112
  3. YAZ [Suspect]
     Indication: CONTRACEPTION
     Dosage: UNK UNK, UNK
     Route: 048
     Dates: start: 20071011, end: 20081118
  4. CALCIUM [Concomitant]
  5. IBUPROFEN [Concomitant]
     Dosage: UNK
     Dates: start: 20081101
  6. BACTRIM DS [Concomitant]
     Indication: PELVIC PAIN
     Dosage: UNK
     Dates: start: 20081112

REACTIONS (8)
  - SENSATION OF HEAVINESS [None]
  - OEDEMA PERIPHERAL [None]
  - DYSPNOEA [None]
  - DEEP VEIN THROMBOSIS [None]
  - ARTHRALGIA [None]
  - CHEST DISCOMFORT [None]
  - PAIN IN EXTREMITY [None]
  - PULMONARY EMBOLISM [None]
